FAERS Safety Report 8596446-0 (Version None)
Quarter: 2012Q3

REPORT INFORMATION
  Report Type: 
  Country: None (occurrence: None)
  Receive Date: 20120815
  Receipt Date: 20120808
  Transmission Date: 20120928
  Serious: Yes (Other)
  Sender: FDA-Public Use
  Company Number: GB-PFIZER INC-2012174447

PATIENT
  Age: 58 Year
  Sex: Female
  Weight: 70 kg

DRUGS (4)
  1. LEVOTHYROXINE SODIUM [Concomitant]
     Indication: HYPOTHYROIDISM
     Dosage: 150 MG, 1X/DAY
     Route: 048
     Dates: start: 20110101
  2. LYRICA [Suspect]
     Dosage: 25 MG, 2X/DAY
     Route: 048
     Dates: start: 20120709, end: 20120710
  3. LYRICA [Suspect]
     Indication: NERVE INJURY
     Dosage: 50 MG, 2X/DAY
     Route: 048
     Dates: start: 20120705, end: 20120708
  4. IBUPROFEN [Concomitant]
     Indication: PAIN
     Dosage: 200 MG, 2X/DAY
     Route: 048
     Dates: start: 20090501

REACTIONS (7)
  - VOMITING [None]
  - HEADACHE [None]
  - CONTUSION [None]
  - HYPERTENSIVE CRISIS [None]
  - DIZZINESS [None]
  - FALL [None]
  - MIDDLE INSOMNIA [None]
